FAERS Safety Report 18640357 (Version 3)
Quarter: 2021Q1

REPORT INFORMATION
  Report Type: Report from Study
  Country: GB (occurrence: GB)
  Receive Date: 20201221
  Receipt Date: 20210105
  Transmission Date: 20210419
  Serious: No
  Sender: FDA-Public Use
  Company Number: GB-JNJFOC-20201143181

PATIENT
  Age: 21 Year
  Sex: Female

DRUGS (8)
  1. STELARA [Suspect]
     Active Substance: USTEKINUMAB
  2. STELARA [Suspect]
     Active Substance: USTEKINUMAB
  3. STELARA [Suspect]
     Active Substance: USTEKINUMAB
  4. STELARA [Suspect]
     Active Substance: USTEKINUMAB
     Indication: CROHN^S DISEASE
     Route: 058
  5. STELARA [Suspect]
     Active Substance: USTEKINUMAB
  6. STELARA [Suspect]
     Active Substance: USTEKINUMAB
  7. STELARA [Suspect]
     Active Substance: USTEKINUMAB
     Indication: CROHN^S DISEASE
     Route: 058
     Dates: start: 2020
  8. STELARA [Suspect]
     Active Substance: USTEKINUMAB

REACTIONS (4)
  - Skin disorder [Unknown]
  - Underdose [Unknown]
  - Self-medication [Unknown]
  - Device leakage [Unknown]
